FAERS Safety Report 5269160-7 (Version None)
Quarter: 2007Q1

REPORT INFORMATION
  Report Type: 
  Country: None (occurrence: None)
  Receive Date: 20070319
  Receipt Date: 20070312
  Transmission Date: 20070707
  Serious: Yes (Other)
  Sender: FDA-Public Use
  Company Number: US-ROXANE LABORATORIES, INC-2007-BP-03510RO

PATIENT
  Age: 67 Year
  Sex: Female
  Weight: 75 kg

DRUGS (12)
  1. LITHIUM CARBONATE [Suspect]
     Indication: BIPOLAR DISORDER
     Dosage: 300 MG BID
     Route: 048
  2. CELECOXIB [Concomitant]
     Indication: OSTEOARTHRITIS
  3. ESTRADIOL [Concomitant]
     Dosage: 0.025 MG/WEEK
     Route: 061
  4. AMITRIPTYLINE HCL [Concomitant]
  5. RABEPRAZOLE SODIUM [Concomitant]
  6. VERAPAMIL [Concomitant]
  7. ATORVASTATIN CALCIUM [Concomitant]
  8. LEVOTHYROXINE SODIUM [Concomitant]
     Indication: HYPOTHYROIDISM
  9. ASCORBIC ACID [Concomitant]
  10. VITAMIN E [Concomitant]
  11. FOLIC ACID [Concomitant]
  12. VITAMIN B-12 [Concomitant]

REACTIONS (3)
  - HYPERCALCAEMIA [None]
  - HYPERPARATHYROIDISM [None]
  - RENAL FAILURE CHRONIC [None]
